FAERS Safety Report 9302867 (Version 1)
Quarter: 2013Q2

REPORT INFORMATION
  Report Type: Report from Study
  Country: CA (occurrence: CA)
  Receive Date: 20130522
  Receipt Date: 20130522
  Transmission Date: 20140414
  Serious: Yes (Other)
  Sender: FDA-Public Use
  Company Number: CA-JNJFOC-20130511306

PATIENT
  Sex: Female
  Weight: 72.58 kg

DRUGS (3)
  1. REMICADE [Suspect]
     Indication: COLITIS ULCERATIVE
     Route: 042
  2. REMICADE [Suspect]
     Indication: COLITIS ULCERATIVE
     Route: 042
  3. METHOTREXATE [Suspect]
     Indication: COLITIS ULCERATIVE
     Route: 065

REACTIONS (1)
  - Rheumatoid arthritis [Unknown]
